FAERS Safety Report 4659940-0 (Version None)
Quarter: 2005Q2

REPORT INFORMATION
  Report Type: 
  Country: None (occurrence: None)
  Receive Date: 20050512
  Receipt Date: 20050504
  Transmission Date: 20051028
  Serious: Yes (Hospitalization)
  Sender: FDA-Public Use
  Company Number: 200510895DE

PATIENT
  Age: 31 Year
  Sex: Female

DRUGS (4)
  1. DOCETAXEL [Suspect]
     Indication: BREAST CANCER
     Dates: start: 20050428, end: 20050428
  2. CYCLOPHOSPHAMIDE [Suspect]
     Indication: BREAST CANCER
     Dates: start: 20050428, end: 20050428
  3. ADRIAMYCIN [Suspect]
     Indication: BREAST CANCER
     Dates: start: 20050428, end: 20050428
  4. PEGFILGRASTIM [Concomitant]
     Dates: end: 20050428

REACTIONS (1)
  - CIRCULATORY COLLAPSE [None]
